FAERS Safety Report 6893190-2 (Version None)
Quarter: 2010Q3

REPORT INFORMATION
  Report Type: 
  Country: None (occurrence: None)
  Receive Date: 20100731
  Receipt Date: 20090622
  Transmission Date: 20110219
  Serious: Yes (Other)
  Sender: FDA-Public Use
  Company Number: US-PFIZER INC-2009230793

PATIENT
  Sex: Male
  Weight: 111.11 kg

DRUGS (4)
  1. GABAPENTIN [Suspect]
     Indication: NEUROPATHY PERIPHERAL
     Route: 048
     Dates: start: 20090616
  2. BUPROPION [Concomitant]
     Dosage: UNK
  3. TRAZODONE [Concomitant]
     Dosage: UNK
  4. AMPHETAMINE SULFATE [Concomitant]
     Dosage: UNK

REACTIONS (2)
  - DRUG INEFFECTIVE [None]
  - OEDEMA PERIPHERAL [None]
